FAERS Safety Report 16251917 (Version 2)
Quarter: 2019Q3

REPORT INFORMATION
  Report Type: Spontaneous
  Country: US (occurrence: US)
  Receive Date: 20190429
  Receipt Date: 20190802
  Transmission Date: 20191004
  Serious: No
  Sender: FDA-Public Use
  Company Number: US-PFIZER INC-2018148213

PATIENT
  Age: 44 Year
  Sex: Male
  Weight: 122 kg

DRUGS (13)
  1. LYRICA [Suspect]
     Active Substance: PREGABALIN
     Indication: SPINAL OSTEOARTHRITIS
     Dosage: 300 MG, 2X/DAY
     Route: 048
     Dates: start: 201803
  2. LYRICA [Suspect]
     Active Substance: PREGABALIN
     Indication: LUMBAR RADICULOPATHY
  3. SYMBICORT [Concomitant]
     Active Substance: BUDESONIDE\FORMOTEROL FUMARATE DIHYDRATE
     Indication: LUNG DISORDER
     Dosage: [BUDESONIDE 160]/[FORMOTEROL FUMARATE 4.5] (2 PUFFS BY MOUTH TWICE DAY 160/4.5AER)
     Route: 048
     Dates: start: 2016
  4. LIPITOR [Concomitant]
     Active Substance: ATORVASTATIN CALCIUM
     Indication: BLOOD CHOLESTEROL INCREASED
     Dosage: 40 MG, DAILY
     Dates: start: 2015
  5. LYRICA [Suspect]
     Active Substance: PREGABALIN
     Indication: BACK PAIN
     Dosage: 150MG IN THE MORNING AND 300 AT NIGHT
  6. METFORMIN [Concomitant]
     Active Substance: METFORMIN HYDROCHLORIDE
     Indication: DIABETES MELLITUS
     Dosage: 1000 MG, 2X/DAY (500MG, 2 TABLETS BY MOUTH TWICE DAILY)
     Route: 048
  7. LYRICA [Suspect]
     Active Substance: PREGABALIN
     Indication: DIABETIC NEUROPATHY
     Dosage: 350 MG, DAILY (100MG CAPSULE IN THE MORNING, 250MG CAPSULE AT NIGHT)
     Dates: start: 2018
  8. TUDORZA PRESSAIR [Concomitant]
     Active Substance: ACLIDINIUM BROMIDE
     Indication: LUNG DISORDER
     Dosage: 400 ACT 1 PUFF BY MOUTH EVERY 12 HOURS
     Dates: start: 2016
  9. PROAIR HFA [Concomitant]
     Active Substance: ALBUTEROL SULFATE
     Indication: LUNG DISORDER
     Dosage: 2 DF, AS NEEDED (2 PUFFS AS NEEDED)
     Dates: start: 2016
  10. LISINOPRIL. [Concomitant]
     Active Substance: LISINOPRIL
     Indication: HYPERTENSION
     Dosage: 10 MG, DAILY
     Dates: start: 2015
  11. HYDROCHLOROTH [Concomitant]
     Active Substance: HYDROCHLOROTHIAZIDE
     Indication: SWELLING
     Dosage: 12.5 MG, ALTERNATE DAY (12.5MG TABLET BY MOUTH EVERY OTHER DAY)
     Dates: start: 2017
  12. LYRICA [Suspect]
     Active Substance: PREGABALIN
     Indication: PAIN
  13. OXYCODONE [Concomitant]
     Active Substance: OXYCODONE
     Indication: BACK PAIN
     Dosage: 1 DF, 4X/DAY (10/325 1 TABLET 4 TIMES A DAY)
     Dates: start: 2017

REACTIONS (1)
  - Gastric disorder [Not Recovered/Not Resolved]
